FAERS Safety Report 17725529 (Version 1)
Quarter: 2020Q2

REPORT INFORMATION
  Report Type: Spontaneous
  Country: IT (occurrence: IT)
  Receive Date: 20200429
  Receipt Date: 20200429
  Transmission Date: 20200714
  Serious: Yes (Hospitalization)
  Sender: FDA-Public Use
  Company Number: IT-MYLANLABS-2020M1042230

PATIENT
  Age: 54 Year
  Sex: Female

DRUGS (5)
  1. LEVETIRACETAM MYLAN 100 MG/ML CONCENTRATO PER SOLUZIONE PER INFUSIONE [Suspect]
     Active Substance: LEVETIRACETAM
     Indication: EPILEPSY
     Dosage: 1000 MILLIGRAM, QD
     Route: 042
     Dates: start: 20200324, end: 20200330
  2. VIMPAT [Suspect]
     Active Substance: LACOSAMIDE
     Indication: EPILEPSY
     Dosage: 2 DOSAGE FORM, QD
     Route: 042
     Dates: start: 20200324, end: 20200330
  3. MEROPENEM AUROBINDO [Suspect]
     Active Substance: MEROPENEM
     Indication: PNEUMONIA
     Dosage: 3 GRAM, QD
     Route: 042
     Dates: start: 20200324, end: 20200330
  4. LINEZOLID KABI [Suspect]
     Active Substance: LINEZOLID
     Indication: PNEUMONITIS
     Dosage: 1200 MILLIGRAM, QD
     Route: 042
     Dates: start: 20200324, end: 20200330
  5. ACICLOVIR HIKMA [Suspect]
     Active Substance: ACYCLOVIR SODIUM
     Indication: ENCEPHALITIS VIRAL
     Dosage: 2250 MILLIGRAM, QD
     Route: 042
     Dates: start: 20200324, end: 20200330

REACTIONS (3)
  - Amylase increased [Not Recovered/Not Resolved]
  - Hypertransaminasaemia [Not Recovered/Not Resolved]
  - Hyperbilirubinaemia [Not Recovered/Not Resolved]

NARRATIVE: CASE EVENT DATE: 20200330
